FAERS Safety Report 9313575 (Version 1)
Quarter: 2013Q2

REPORT INFORMATION
  Report Type: Spontaneous
  Country: US (occurrence: US)
  Receive Date: 20130528
  Receipt Date: 20130528
  Transmission Date: 20140414
  Serious: No
  Sender: FDA-Public Use
  Company Number: US-ASTRAZENECA-2013SE34515

PATIENT
  Sex: Female

DRUGS (1)
  1. RHINOCORT AQUA [Suspect]
     Indication: MULTIPLE ALLERGIES
     Dosage: TWO SPRAYS DAILY
     Route: 045
     Dates: start: 20130510

REACTIONS (4)
  - Eye pruritus [Unknown]
  - Nasal discomfort [Unknown]
  - Sneezing [Unknown]
  - Drug effect decreased [Unknown]
